FAERS Safety Report 20549409 (Version 3)
Quarter: 2022Q2

REPORT INFORMATION
  Report Type: Spontaneous
  Country: US (occurrence: None)
  Receive Date: 20220303
  Receipt Date: 20220422
  Transmission Date: 20220720
  Serious: No
  Sender: FDA-Public Use
  Company Number: 2022A086275

PATIENT
  Age: 72 Year
  Sex: Male
  Weight: 68 kg

DRUGS (2)
  1. FASENRA [Suspect]
     Active Substance: BENRALIZUMAB
     Indication: Asthma
     Dosage: 30MG/ML
     Route: 058
  2. FASENRA [Suspect]
     Active Substance: BENRALIZUMAB
     Indication: Asthma late onset
     Dosage: 30MG/ML
     Route: 058

REACTIONS (5)
  - Cough [Unknown]
  - Productive cough [Unknown]
  - Product dose omission issue [Unknown]
  - Product distribution issue [Unknown]
  - Insurance issue [Unknown]
